FAERS Safety Report 19661057 (Version 1)
Quarter: 2021Q3

REPORT INFORMATION
  Report Type: Spontaneous
  Country: FR (occurrence: FR)
  Receive Date: 20210805
  Receipt Date: 20210805
  Transmission Date: 20211014
  Serious: Yes (Hospitalization)
  Sender: FDA-Public Use
  Company Number: FR-MYLANLABS-2021M1047427

PATIENT
  Age: 55 Year
  Sex: Female
  Weight: 53.5 kg

DRUGS (3)
  1. BROMAZEPAM [Suspect]
     Active Substance: BROMAZEPAM
     Indication: TOXICITY TO VARIOUS AGENTS
     Dosage: NON PRECISE
     Route: 048
     Dates: start: 20210102, end: 20210102
  2. ZOPICLONE [Suspect]
     Active Substance: ZOPICLONE
     Indication: TOXICITY TO VARIOUS AGENTS
     Dosage: NON PRECISE
     Route: 048
     Dates: start: 20210102, end: 20210102
  3. PARACETAMOL [Suspect]
     Active Substance: ACETAMINOPHEN
     Indication: TOXICITY TO VARIOUS AGENTS
     Dosage: NON PRECISE
     Route: 048
     Dates: start: 20210102, end: 20210102

REACTIONS (4)
  - Altered state of consciousness [Recovered/Resolved]
  - Hypokalaemia [Unknown]
  - Somnolence [Recovered/Resolved]
  - Hypotension [Recovered/Resolved]

NARRATIVE: CASE EVENT DATE: 20210102
